FAERS Safety Report 15806895 (Version 1)
Quarter: 2019Q1

REPORT INFORMATION
  Report Type: Spontaneous
  Country: US (occurrence: US)
  Receive Date: 20190110
  Receipt Date: 20190110
  Transmission Date: 20190417
  Serious: Yes (Hospitalization)
  Sender: FDA-Public Use
  Company Number: None

PATIENT
  Age: 66 Year
  Sex: Female

DRUGS (13)
  1. SODIUM BICAR [Concomitant]
  2. WARFARIN [Concomitant]
     Active Substance: WARFARIN
  3. BUDESONIDE. [Concomitant]
     Active Substance: BUDESONIDE
  4. INTEGRA [Concomitant]
     Active Substance: DIETARY SUPPLEMENT
  5. LYRICA [Concomitant]
     Active Substance: PREGABALIN
  6. MAGNESIUM OX [Concomitant]
  7. ENOXAPARIN [Concomitant]
     Active Substance: ENOXAPARIN
  8. ENTYVIO [Concomitant]
     Active Substance: VEDOLIZUMAB
  9. FLUOXETINE [Concomitant]
     Active Substance: FLUOXETINE HYDROCHLORIDE
  10. TORSEMIDE. [Concomitant]
     Active Substance: TORSEMIDE
  11. FORTEO [Suspect]
     Active Substance: TERIPARATIDE
     Indication: CROHN^S DISEASE
     Route: 058
     Dates: start: 20180413
  12. POT CHLORIDE [Concomitant]
     Active Substance: POTASSIUM CHLORIDE
  13. SOTALOL. [Concomitant]
     Active Substance: SOTALOL

REACTIONS (3)
  - Product storage error [None]
  - Crohn^s disease [None]
  - Product dose omission [None]

NARRATIVE: CASE EVENT DATE: 20190107
